FAERS Safety Report 22000517 (Version 1)
Quarter: 2023Q1

REPORT INFORMATION
  Report Type: Report from Study
  Country: NL (occurrence: NL)
  Receive Date: 20230216
  Receipt Date: 20230216
  Transmission Date: 20230418
  Serious: Yes (Hospitalization, Other)
  Sender: FDA-Public Use
  Company Number: NL-JNJFOC-20230215166

PATIENT

DRUGS (3)
  1. STELARA [Suspect]
     Active Substance: USTEKINUMAB
     Indication: Crohn^s disease
     Dosage: 12-WEEKLY DOSING AND AT 8-WEEKLY DOSING
     Route: 058
     Dates: start: 201605
  2. STELARA [Suspect]
     Active Substance: USTEKINUMAB
     Dosage: 12-WEEKLY DOSING AND AT 8-WEEKLY DOSING
     Route: 058
     Dates: start: 201609
  3. VEDOLIZUMAB [Suspect]
     Active Substance: VEDOLIZUMAB
     Indication: Crohn^s disease
     Route: 065

REACTIONS (23)
  - Otitis media [Unknown]
  - Infusion related reaction [Unknown]
  - Herpes zoster [Unknown]
  - Infection [Unknown]
  - Hypersensitivity [Unknown]
  - Pancreatitis [Unknown]
  - Epilepsy [Unknown]
  - Gastrointestinal disorder [Unknown]
  - Musculoskeletal disorder [Unknown]
  - Fungal infection [Unknown]
  - Urinary tract infection [Unknown]
  - Influenza like illness [Unknown]
  - Respiratory tract infection [Unknown]
  - Upper respiratory tract infection [Unknown]
  - Arthralgia [Unknown]
  - Headache [Unknown]
  - Nervous system disorder [Unknown]
  - Mental disorder [Unknown]
  - Female reproductive tract disorder [Unknown]
  - Soft tissue disorder [Unknown]
  - Ear disorder [Unknown]
  - Skin disorder [Unknown]
  - Therapeutic response decreased [Unknown]
